FAERS Safety Report 10908664 (Version 2)
Quarter: 2015Q2

REPORT INFORMATION
  Report Type: Spontaneous
  Country: IT (occurrence: IT)
  Receive Date: 20150312
  Receipt Date: 20150612
  Transmission Date: 20150821
  Serious: Yes (Other)
  Sender: FDA-Public Use
  Company Number: IT-ACTAVIS-2015-04756

PATIENT
  Age: 67 Year
  Sex: Female

DRUGS (4)
  1. FELISON [Suspect]
     Active Substance: FLURAZEPAM MONOHYDROCHLORIDE
     Indication: PRODUCT USED FOR UNKNOWN INDICATION
     Dosage: 120 MG, TOTAL
     Route: 048
     Dates: start: 20141018, end: 20141018
  2. HALCION [Suspect]
     Active Substance: TRIAZOLAM
     Indication: PRODUCT USED FOR UNKNOWN INDICATION
     Dosage: 1 MG, TOTAL
     Route: 048
     Dates: start: 20141018, end: 20141018
  3. QUETIAPINE [Suspect]
     Active Substance: QUETIAPINE
     Indication: PRODUCT USED FOR UNKNOWN INDICATION
     Dosage: 50 MG, TOTAL
     Route: 048
     Dates: start: 20141018, end: 20141018
  4. RIVOTRIL [Suspect]
     Active Substance: CLONAZEPAM
     Indication: PRODUCT USED FOR UNKNOWN INDICATION
     Dosage: 4 MG, TOTAL
     Route: 048
     Dates: start: 20141018, end: 20141018

REACTIONS (5)
  - Overdose [Recovering/Resolving]
  - Ataxia [Recovering/Resolving]
  - Electrocardiogram abnormal [Recovering/Resolving]
  - Sopor [Recovering/Resolving]
  - Drug abuse [Recovering/Resolving]

NARRATIVE: CASE EVENT DATE: 20141018
